FAERS Safety Report 7970604-8 (Version None)
Quarter: 2011Q4

REPORT INFORMATION
  Report Type: 
  Country: None (occurrence: None)
  Receive Date: 20111212
  Receipt Date: 20111130
  Transmission Date: 20120403
  Serious: Yes (Hospitalization)
  Sender: FDA-Public Use
  Company Number: NL-MEDIMMUNE-MEDI-0014087

PATIENT
  Sex: Female
  Weight: 3.88 kg

DRUGS (2)
  1. SYNAGIS [Suspect]
     Indication: HEART DISEASE CONGENITAL
     Route: 030
     Dates: start: 20111005, end: 20111005
  2. SYNAGIS [Suspect]
     Route: 030
     Dates: start: 20111102, end: 20111102

REACTIONS (3)
  - DYSPNOEA [None]
  - MYOCARDIAL OEDEMA [None]
  - ADVERSE EVENT [None]
